FAERS Safety Report 5504648-2 (Version None)
Quarter: 2007Q4

REPORT INFORMATION
  Report Type: 
  Country: None (occurrence: None)
  Receive Date: 20071101
  Receipt Date: 20071025
  Transmission Date: 20080405
  Serious: No
  Sender: FDA-Public Use
  Company Number: US-BOEHRINGER INGELHEIM PHARMACEUTICALS, INC.-2007-BP-20087BP

PATIENT
  Age: 74 Year
  Sex: Female

DRUGS (6)
  1. MIRAPEX [Suspect]
     Indication: RESTLESS LEGS SYNDROME
     Route: 048
     Dates: start: 20020101
  2. LESCOL [Concomitant]
     Indication: BLOOD CHOLESTEROL INCREASED
  3. PRINZIDE [Concomitant]
     Indication: HYPERTENSION
  4. SULAR [Concomitant]
     Indication: DEPRESSION
  5. PREVACID [Concomitant]
     Indication: STOMACH DISCOMFORT
  6. ASPIRIN [Concomitant]

REACTIONS (3)
  - FATIGUE [None]
  - GAMBLING [None]
  - MALAISE [None]
